FAERS Safety Report 9612723 (Version 2)
Quarter: 2013Q4

REPORT INFORMATION
  Report Type: Spontaneous
  Country: US (occurrence: None)
  Receive Date: 20131008
  Receipt Date: 20131212
  Transmission Date: 20140711
  Serious: Yes (Hospitalization)
  Sender: FDA-Public Use
  Company Number: 2013-US-001370

PATIENT
  Age: 71 Year
  Sex: Male

DRUGS (1)
  1. XYREM [Suspect]
     Indication: HYPERSOMNIA
     Dosage: 2.25 G, BID, ORAL
     Route: 048
     Dates: start: 20090925, end: 2009

REACTIONS (5)
  - Chills [None]
  - Pain [None]
  - Anaemia [None]
  - Inflammatory marker increased [None]
  - Polymyalgia rheumatica [None]
